FAERS Safety Report 6704619-4 (Version None)
Quarter: 2010Q2

REPORT INFORMATION
  Report Type: 
  Country: None (occurrence: None)
  Receive Date: 20100430
  Receipt Date: 20100421
  Transmission Date: 20101027
  Serious: Yes (Other)
  Sender: FDA-Public Use
  Company Number: US-JNJFOC-20070904632

PATIENT
  Age: 40 Year
  Sex: Male
  Weight: 120.2 kg

DRUGS (2)
  1. EXTRA STRENGTH TYLENOL [Suspect]
     Route: 048
  2. EXTRA STRENGTH TYLENOL [Suspect]
     Indication: HEADACHE
     Route: 048

REACTIONS (7)
  - FALL [None]
  - FOREIGN BODY [None]
  - LOSS OF CONSCIOUSNESS [None]
  - PRODUCT CONTAMINATION PHYSICAL [None]
  - TONGUE INJURY [None]
  - TOOTH LOSS [None]
  - VOMITING [None]
